FAERS Safety Report 24649581 (Version 1)
Quarter: 2024Q4

REPORT INFORMATION
  Report Type: Spontaneous
  Country: FR (occurrence: FR)
  Receive Date: 20241121
  Receipt Date: 20241121
  Transmission Date: 20250115
  Serious: Yes (Hospitalization, Other)
  Sender: ALEXION PHARMACEUTICALS
  Company Number: FR-AstraZeneca-CH-00748780A

PATIENT

DRUGS (4)
  1. SAPHNELO [Suspect]
     Active Substance: ANIFROLUMAB-FNIA
     Dosage: 300 MILLIGRAM, Q4W
  2. SAPHNELO [Suspect]
     Active Substance: ANIFROLUMAB-FNIA
     Dosage: 300 MILLIGRAM, Q4W
  3. SAPHNELO [Suspect]
     Active Substance: ANIFROLUMAB-FNIA
     Dosage: 300 MILLIGRAM, Q4W
  4. SAPHNELO [Suspect]
     Active Substance: ANIFROLUMAB-FNIA
     Dosage: 300 MILLIGRAM, Q4W

REACTIONS (1)
  - Lupus nephritis [Recovering/Resolving]
